FAERS Safety Report 9833535 (Version 2)
Quarter: 2014Q2

REPORT INFORMATION
  Report Type: Spontaneous
  Country: GB (occurrence: GB)
  Receive Date: 20140122
  Receipt Date: 20140429
  Transmission Date: 20141212
  Serious: Yes (Hospitalization, Disabling)
  Sender: FDA-Public Use
  Company Number: GB-ACCORD-021325

PATIENT
  Age: 80 Year
  Sex: Male
  Weight: 114 kg

DRUGS (3)
  1. BICALUTAMIDE [Suspect]
     Indication: PRODUCT USED FOR UNKNOWN INDICATION
     Dates: start: 20131010
  2. UREA [Concomitant]
     Dates: start: 20131206, end: 20131213
  3. CLOBETASONE [Concomitant]
     Dates: start: 20131227

REACTIONS (3)
  - Urticaria [Not Recovered/Not Resolved]
  - Dizziness [Unknown]
  - Vasculitis [Unknown]
